FAERS Safety Report 8440325-6 (Version None)
Quarter: 2012Q2

REPORT INFORMATION
  Report Type: 
  Country: None (occurrence: None)
  Receive Date: 20120615
  Receipt Date: 20120605
  Transmission Date: 20120825
  Serious: Yes (Other)
  Sender: FDA-Public Use
  Company Number: CHPA2012US012390

PATIENT
  Age: 94 Year
  Sex: Male

DRUGS (1)
  1. VOLTAREN [Suspect]
     Indication: ARTHRITIS
     Dosage: UNK, TID
     Route: 061

REACTIONS (7)
  - MALAISE [None]
  - ASTHENIA [None]
  - DRUG ADMINISTERED AT INAPPROPRIATE SITE [None]
  - IRRITABILITY [None]
  - ARTHRITIS [None]
  - INSOMNIA [None]
  - THERAPEUTIC RESPONSE UNEXPECTED [None]
